FAERS Safety Report 5280058-0 (Version None)
Quarter: 2007Q1

REPORT INFORMATION
  Report Type: 
  Country: None (occurrence: None)
  Receive Date: 20061229
  Receipt Date: 20061023
  Transmission Date: 20070707
  Serious: Yes (Other)
  Sender: FDA-Public Use
  Company Number: 2006UW20398

PATIENT
  Age: 78 Year
  Sex: Female

DRUGS (4)
  1. CRESTOR [Suspect]
     Dosage: 5 MG PO
     Route: 048
  2. LISINOPRIL [Concomitant]
  3. ASPIRIN [Concomitant]
  4. AMBIEN [Concomitant]

REACTIONS (1)
  - HOT FLUSH [None]
